FAERS Safety Report 9356426 (Version 1)
Quarter: 2013Q2

REPORT INFORMATION
  Report Type: Spontaneous
  Country: CN (occurrence: CN)
  Receive Date: 20130619
  Receipt Date: 20130619
  Transmission Date: 20140414
  Serious: Yes (Life-Threatening)
  Sender: FDA-Public Use
  Company Number: CN-ROXANE LABORATORIES, INC.-2013-RO-00982RO

PATIENT
  Age: 56 Year
  Sex: Female
  Weight: 53 kg

DRUGS (3)
  1. CLOPIDOGREL [Suspect]
     Indication: ANTIPLATELET THERAPY
     Dosage: 75 MG
     Route: 048
  2. ASPIRIN [Suspect]
     Indication: ANTIPLATELET THERAPY
     Dosage: 3600 MG
     Route: 048
  3. HEPARIN [Suspect]
     Indication: ANTIPLATELET THERAPY
     Route: 042

REACTIONS (1)
  - Embolism [Unknown]
